FAERS Safety Report 5680858-9 (Version None)
Quarter: 2008Q1

REPORT INFORMATION
  Report Type: 
  Country: None (occurrence: None)
  Receive Date: 20080325
  Receipt Date: 20080319
  Transmission Date: 20080703
  Serious: Yes (Other)
  Sender: FDA-Public Use
  Company Number: 2008SP005613

PATIENT
  Sex: Male

DRUGS (2)
  1. PEG-INTRON [Suspect]
     Indication: HEPATITIS
     Dosage: ;SC
     Route: 058
  2. RIBAVIRIN [Suspect]
     Indication: HEPATITIS
     Dosage: ;PO
     Route: 048

REACTIONS (2)
  - HAEMATOCHEZIA [None]
  - LOWER GASTROINTESTINAL HAEMORRHAGE [None]
